FAERS Safety Report 6261442-5 (Version None)
Quarter: 2009Q3

REPORT INFORMATION
  Report Type: 
  Country: None (occurrence: None)
  Receive Date: 20090709
  Receipt Date: 20090629
  Transmission Date: 20100115
  Serious: Yes (Death)
  Sender: FDA-Public Use
  Company Number: US-MYLANLABS-2009S1011755

PATIENT
  Age: 52 Year
  Sex: Male

DRUGS (3)
  1. MIRTAZAPINE [Suspect]
     Indication: DEPRESSION
     Route: 048
     Dates: start: 20040101, end: 20090501
  2. CLONAZEPAM [Suspect]
     Route: 048
     Dates: start: 20040101, end: 20090501
  3. ZYPREXA [Suspect]
     Dates: start: 20040101, end: 20090501

REACTIONS (3)
  - COMPLETED SUICIDE [None]
  - DRUG INTERACTION [None]
  - FEELING ABNORMAL [None]
